FAERS Safety Report 6507204-2 (Version None)
Quarter: 2009Q4

REPORT INFORMATION
  Report Type: 
  Country: None (occurrence: None)
  Receive Date: 20091221
  Receipt Date: 20091211
  Transmission Date: 20100525
  Serious: Yes (Other)
  Sender: FDA-Public Use
  Company Number: PHHY2009CA47108

PATIENT
  Sex: Female

DRUGS (6)
  1. EXJADE [Suspect]
     Indication: MYELODYSPLASTIC SYNDROME
     Dosage: 1000MG, UNK
     Route: 048
     Dates: start: 20091013
  2. EXJADE [Suspect]
     Indication: IRON OVERLOAD
     Dosage: 1250 MG, QD
     Route: 048
     Dates: start: 20091021
  3. BISOPROLOL [Concomitant]
     Indication: BLOOD PRESSURE
     Dosage: 5 MG 1/4 TABLET QD
     Route: 048
  4. ATACAND [Concomitant]
     Indication: BLOOD PRESSURE
     Dosage: 4 MG 1 AND 1/2 TABLET QD
     Route: 048
  5. WARFARIN SODIUM [Concomitant]
     Dosage: 3 MG 1 1/2 TABLET QD ON MONDAY, WEDNESDAY AND FRIDAY AND 1 TABLET QD REST OF DAYS
     Route: 048
  6. THALOMID [Concomitant]

REACTIONS (6)
  - CARDIAC DISORDER [None]
  - DIZZINESS [None]
  - HYPOTENSION [None]
  - NAUSEA [None]
  - OCULAR HYPERAEMIA [None]
  - SENSATION OF HEAVINESS [None]
